FAERS Safety Report 17835534 (Version 1)
Quarter: 2020Q2

REPORT INFORMATION
  Report Type: Spontaneous
  Country: IE (occurrence: IE)
  Receive Date: 20200528
  Receipt Date: 20200528
  Transmission Date: 20200714
  Serious: Yes (Hospitalization)
  Sender: FDA-Public Use
  Company Number: IE-AMNEAL PHARMACEUTICALS-2020-AMRX-01530

PATIENT
  Age: 23 Year
  Sex: Female

DRUGS (1)
  1. PROGESTERONE. [Suspect]
     Active Substance: PROGESTERONE
     Indication: PRODUCT USED FOR UNKNOWN INDICATION
     Dosage: UNK, IMPLANT
     Route: 065

REACTIONS (4)
  - Porphyria acute [Recovered/Resolved]
  - Appendicitis perforated [Unknown]
  - Visual field defect [Recovered/Resolved]
  - Posterior reversible encephalopathy syndrome [Recovered/Resolved]
